FAERS Safety Report 9152651 (Version 1)
Quarter: 2013Q1

REPORT INFORMATION
  Report Type: Other
  Country: US (occurrence: US)
  Receive Date: 20130308
  Receipt Date: 20130308
  Transmission Date: 20140127
  Serious: Yes (Hospitalization, Other)
  Sender: FDA-Public Use
  Company Number: US-FRI-1000043089

PATIENT
  Age: 64 Year
  Sex: Female

DRUGS (5)
  1. NEBIVOLOL [Suspect]
     Indication: PRINZMETAL ANGINA
     Dosage: 10 MG
  2. HYDROCHLOROTHIAZIDE [Concomitant]
     Dosage: 25 MG
  3. LISINOPRIL [Concomitant]
     Dosage: 40 MG
  4. LIPITOR [Concomitant]
     Dosage: 40 MG
  5. ASPIRIN [Concomitant]
     Dosage: 325 MG

REACTIONS (3)
  - Arteriospasm coronary [Recovered/Resolved]
  - Electrocardiogram T wave inversion [Recovered/Resolved]
  - Angina pectoris [Recovered/Resolved]
